FAERS Safety Report 12326440 (Version 1)
Quarter: 2016Q2

REPORT INFORMATION
  Report Type: Spontaneous
  Country: CA (occurrence: CA)
  Receive Date: 20160503
  Receipt Date: 20160503
  Transmission Date: 20160815
  Serious: Yes (Other)
  Sender: FDA-Public Use
  Company Number: PHHY2016CA057819

PATIENT
  Age: 78 Year
  Sex: Female
  Weight: 31.75 kg

DRUGS (4)
  1. APO-FLURAZEPAM [Concomitant]
     Active Substance: FLURAZEPAM HYDROCHLORIDE
     Indication: PRODUCT USED FOR UNKNOWN INDICATION
     Route: 065
  2. AMITRIPTYLINE [Concomitant]
     Active Substance: AMITRIPTYLINE
     Indication: PRODUCT USED FOR UNKNOWN INDICATION
     Route: 065
  3. DILANTIN [Concomitant]
     Active Substance: PHENYTOIN
     Indication: PRODUCT USED FOR UNKNOWN INDICATION
     Route: 065
  4. ONBREZ BREEZHALER [Suspect]
     Active Substance: INDACATEROL
     Indication: EMPHYSEMA
     Dosage: 1 DF, QD
     Route: 048

REACTIONS (6)
  - Pain [Recovered/Resolved]
  - Oral discomfort [Recovered/Resolved]
  - Eye pain [Recovered/Resolved]
  - Infection [Recovered/Resolved]
  - Dyspepsia [Recovered/Resolved]
  - Lacrimation increased [Recovered/Resolved]
